FAERS Safety Report 6443097-X (Version None)
Quarter: 2009Q4

REPORT INFORMATION
  Report Type: 
  Country: None (occurrence: None)
  Receive Date: 20091117
  Receipt Date: 20091109
  Transmission Date: 20100525
  Serious: Yes (Other)
  Sender: FDA-Public Use
  Company Number: B0598673A

PATIENT
  Sex: Female
  Weight: 127 kg

DRUGS (1)
  1. ALLI [Suspect]
     Dosage: 60MG THREE TIMES PER DAY
     Route: 065
     Dates: start: 20091014, end: 20091015

REACTIONS (1)
  - RECTAL HAEMORRHAGE [None]
